FAERS Safety Report 9624018 (Version 1)
Quarter: 2013Q4

REPORT INFORMATION
  Report Type: Spontaneous
  Country: US (occurrence: US)
  Receive Date: 20131015
  Receipt Date: 20131015
  Transmission Date: 20140711
  Serious: Yes (Hospitalization)
  Sender: FDA-Public Use
  Company Number: US-BAYER-2013-124551

PATIENT
  Age: 30 Year
  Sex: Female

DRUGS (8)
  1. YAZ [Suspect]
     Dosage: UNK
     Dates: end: 20081218
  2. FEXOFENADINE [Concomitant]
     Dosage: 180 MG, UNK
  3. FLUTICASONE [Concomitant]
     Dosage: 50 ?G, UNK
  4. PROMETHAZINE [Concomitant]
     Dosage: 25 MG, UNK
  5. METOPROLOL [Concomitant]
     Dosage: 50 MG, UNK
  6. PSEUDOEPHEDRINE [Concomitant]
     Dosage: PRN
  7. METFORMIN [Concomitant]
  8. LOPRESSOR [Concomitant]
     Indication: TACHYCARDIA

REACTIONS (2)
  - Pulmonary embolism [None]
  - Deep vein thrombosis [None]
